FAERS Safety Report 6300571-4 (Version None)
Quarter: 2009Q3

REPORT INFORMATION
  Report Type: 
  Country: None (occurrence: None)
  Receive Date: 20090806
  Receipt Date: 20090320
  Transmission Date: 20100115
  Serious: No
  Sender: FDA-Public Use
  Company Number: US-ABBOTT-09P-163-0564025-00

PATIENT
  Sex: Male
  Weight: 94.886 kg

DRUGS (2)
  1. DEPAKOTE ER [Suspect]
     Indication: CONVULSION
     Route: 048
     Dates: start: 20090101
  2. DEPAKOTE ER [Suspect]
     Dosage: DEPAKOTE
     Dates: start: 20000101, end: 20090101

REACTIONS (1)
  - TREMOR [None]
